FAERS Safety Report 7074740-2 (Version None)
Quarter: 2010Q4

REPORT INFORMATION
  Report Type: 
  Country: None (occurrence: None)
  Receive Date: 20101029
  Receipt Date: 20101026
  Transmission Date: 20110411
  Serious: Yes (Hospitalization)
  Sender: FDA-Public Use
  Company Number: US-RB-015310-10

PATIENT
  Age: 49 Year
  Sex: Female

DRUGS (3)
  1. SUBOXONE [Suspect]
     Route: 060
     Dates: start: 20070101, end: 20070101
  2. SUBOXONE [Suspect]
     Indication: DRUG DEPENDENCE
     Dosage: DOSE TAPERED TO 2 MG DAILY
     Route: 060
     Dates: start: 20070101
  3. SUBOXONE [Suspect]
     Route: 060
     Dates: end: 20101019

REACTIONS (4)
  - COLITIS [None]
  - DRUG WITHDRAWAL SYNDROME [None]
  - FEELING ABNORMAL [None]
  - GASTROINTESTINAL INFECTION [None]
